FAERS Safety Report 7445087-7 (Version None)
Quarter: 2011Q2

REPORT INFORMATION
  Report Type: 
  Country: None (occurrence: None)
  Receive Date: 20110429
  Receipt Date: 20110426
  Transmission Date: 20111010
  Serious: Yes (Other)
  Sender: FDA-Public Use
  Company Number: PHHY2011DO35209

PATIENT
  Age: 82 Year
  Sex: Male

DRUGS (9)
  1. PRAZOSIN HCL [Concomitant]
     Dosage: 4 MG, UNK
     Route: 048
  2. RASILEZ [Suspect]
     Indication: HYPERTENSION
     Dosage: 150 MG, QD
     Route: 048
  3. METOPROLOL [Concomitant]
     Dosage: 100 MG, QD
     Route: 048
  4. APROVEL [Concomitant]
     Dosage: 300 MG, QD
     Route: 048
  5. PREDNISONE [Concomitant]
     Dosage: 10 MG, QD
     Route: 048
  6. DIAMICRON [Concomitant]
     Dosage: 30 MG, QD
     Route: 048
  7. PROGRAF [Concomitant]
     Dosage: UNK
  8. CELLCEPT [Concomitant]
     Dosage: UNK
  9. METFORMIN [Concomitant]
     Dosage: 850 MG, QD
     Route: 048

REACTIONS (3)
  - OLIGURIA [None]
  - CHEST PAIN [None]
  - GENERALISED OEDEMA [None]
